FAERS Safety Report 5725686-0 (Version None)
Quarter: 2008Q2

REPORT INFORMATION
  Report Type: 
  Country: None (occurrence: None)
  Receive Date: 20080429
  Receipt Date: 20080416
  Transmission Date: 20081010
  Serious: Yes (Hospitalization)
  Sender: FDA-Public Use
  Company Number: 100#08#2008-02302

PATIENT
  Age: 60 Year
  Sex: Female

DRUGS (3)
  1. CYCLOSPORINE [Suspect]
     Indication: PYODERMA GANGRENOSUM
     Dosage: 300 MG
     Dates: start: 20030101, end: 20050101
  2. METHYLPREDNISOLONE [Suspect]
     Indication: PYODERMA GANGRENOSUM
     Dosage: 16 MG
     Dates: start: 20030101, end: 20050101
  3. MYCOPHENOLATE MOFETIL [Suspect]
     Indication: PYODERMA GANGRENOSUM
     Dosage: 2 GM
     Dates: start: 20030101, end: 20050101

REACTIONS (14)
  - ANAEMIA [None]
  - INDURATION [None]
  - INFLAMMATION [None]
  - MYCOBACTERIUM CHELONEI INFECTION [None]
  - PURULENT DISCHARGE [None]
  - PYODERMA GANGRENOSUM [None]
  - RASH ERYTHEMATOUS [None]
  - SCAR [None]
  - SKIN INFECTION [None]
  - SKIN LESION [None]
  - SKIN ULCER [None]
  - SUBCUTANEOUS ABSCESS [None]
  - SUBCUTANEOUS NODULE [None]
  - THROMBOCYTOPENIA [None]
